FAERS Safety Report 19162753 (Version 3)
Quarter: 2021Q3

REPORT INFORMATION
  Report Type: Spontaneous
  Country: JP (occurrence: JP)
  Receive Date: 20210421
  Receipt Date: 20210831
  Transmission Date: 20211014
  Serious: Yes (Death, Life-Threatening, Other)
  Sender: FDA-Public Use
  Company Number: JP-009507513-2104JPN001180J

PATIENT
  Age: 95 Year
  Sex: Female
  Weight: 34 kg

DRUGS (4)
  1. STROMECTOL [Suspect]
     Active Substance: IVERMECTIN
     Indication: ACARODERMATITIS
     Dosage: UNK
     Route: 048
     Dates: start: 20210410
  2. XARELTO [Concomitant]
     Active Substance: RIVAROXABAN
     Dosage: 10 MILLIGRAM, QD
     Route: 048
  3. TULOBUTEROL [Concomitant]
     Active Substance: TULOBUTEROL
     Dosage: 2 MILLIGRAM, QD
  4. STROMECTOL [Suspect]
     Active Substance: IVERMECTIN
     Dosage: UNK
     Route: 048

REACTIONS (10)
  - Bronchial obstruction [Unknown]
  - Long QT syndrome [Recovering/Resolving]
  - Altered state of consciousness [Recovering/Resolving]
  - Ventricular fibrillation [Recovering/Resolving]
  - Death [Fatal]
  - Cerebral ischaemia [Unknown]
  - Scoliosis [Unknown]
  - Ventricular tachycardia [Recovering/Resolving]
  - Hip deformity [Unknown]
  - Pneumonia aspiration [Unknown]

NARRATIVE: CASE EVENT DATE: 20210411
